FAERS Safety Report 19809184 (Version 1)
Quarter: 2021Q3

REPORT INFORMATION
  Report Type: Report from Study
  Country: GB (occurrence: GB)
  Receive Date: 20210908
  Receipt Date: 20210908
  Transmission Date: 20211014
  Serious: Yes (Hospitalization)
  Sender: FDA-Public Use
  Company Number: NVSC2021GB203773

PATIENT
  Sex: Female

DRUGS (1)
  1. OMNITROPE [Suspect]
     Active Substance: SOMATROPIN
     Indication: GESTATIONAL AGE TEST ABNORMAL
     Dosage: 0.8 MG, QD (CARTIDGES)
     Route: 058
     Dates: start: 20191002

REACTIONS (1)
  - Asthma [Unknown]
